FAERS Safety Report 4950186-5 (Version None)
Quarter: 2006Q1

REPORT INFORMATION
  Report Type: 
  Country: None (occurrence: None)
  Receive Date: 20060316
  Receipt Date: 20060307
  Transmission Date: 20060701
  Serious: Yes (Death, Life-Threatening)
  Sender: FDA-Public Use
  Company Number: OMPQ-NO-0602S-0096

PATIENT
  Age: 69 Year
  Sex: Male
  Weight: 44.3 kg

DRUGS (8)
  1. OMNIPAQUE 140 [Suspect]
     Indication: SCLEROSING ENCAPSULATING PERITONITIS
     Dosage: 82 ML, SINGLE DOSE, I.V.
     Route: 042
     Dates: start: 20060207, end: 20060207
  2. PREDNISOLONE (PREDONINE) [Concomitant]
  3. LOSARTAN POTASSIUM (NU-LOTAN) [Concomitant]
  4. REBAMIPIDE (MUCOSTA) [Concomitant]
  5. LEVOGLUTAMIDE, SODIUM GUALENATE (MARZULENE-S) [Concomitant]
  6. CALCIUM CARBONATE (CALTAN) [Concomitant]
  7. DOXAZOSIN MESYLATE [Concomitant]
  8. GLUCOSE INJECTION (GLU 50) [Concomitant]

REACTIONS (11)
  - ACUTE MYOCARDIAL INFARCTION [None]
  - BLOOD PRESSURE DECREASED [None]
  - BLOOD PRESSURE SYSTOLIC DECREASED [None]
  - DYSPNOEA [None]
  - HAEMODIALYSIS [None]
  - HYPOKINESIA [None]
  - LOSS OF CONSCIOUSNESS [None]
  - MYDRIASIS [None]
  - NAUSEA [None]
  - PNEUMOTHORAX [None]
  - STRIDOR [None]
